FAERS Safety Report 16441768 (Version 2)
Quarter: 2019Q2

REPORT INFORMATION
  Report Type: Report from Study
  Country: None (occurrence: US)
  Receive Date: 20190617
  Receipt Date: 20190618
  Transmission Date: 20190711
  Serious: No
  Sender: FDA-Public Use
  Company Number: US-US WORLDMEDS, LLC-USW201806-000985

PATIENT
  Sex: Female

DRUGS (6)
  1. ZOLOFT [Concomitant]
     Active Substance: SERTRALINE HYDROCHLORIDE
  2. AZILECT [Concomitant]
     Active Substance: RASAGILINE MESYLATE
  3. APOKYN [Suspect]
     Active Substance: APOMORPHINE HYDROCHLORIDE
     Indication: PARKINSON^S DISEASE
     Route: 058
     Dates: start: 20170920
  4. SINEMET [Suspect]
     Active Substance: CARBIDOPA\LEVODOPA
  5. AMANTADINE. [Concomitant]
     Active Substance: AMANTADINE HYDROCHLORIDE
  6. BACLOFEN. [Concomitant]
     Active Substance: BACLOFEN

REACTIONS (1)
  - Dyskinesia [Recovered/Resolved]

NARRATIVE: CASE EVENT DATE: 2018
